FAERS Safety Report 9170067 (Version 1)
Quarter: 2013Q1

REPORT INFORMATION
  Report Type: Spontaneous
  Country: US (occurrence: None)
  Receive Date: 20130308
  Receipt Date: 20130308
  Transmission Date: 20140127
  Serious: Yes (Other)
  Sender: FDA-Public Use
  Company Number: 2013AP003344

PATIENT
  Age: 47 Year
  Sex: Male

DRUGS (1)
  1. GABAPENTIN TABLETS [Suspect]
     Indication: NEURALGIA

REACTIONS (6)
  - Disorientation [None]
  - Convulsion [None]
  - Amnesia [None]
  - Accidental overdose [None]
  - Somnambulism [None]
  - Depression [None]
